FAERS Safety Report 6220011-3 (Version None)
Quarter: 2009Q2

REPORT INFORMATION
  Report Type: 
  Country: None (occurrence: None)
  Receive Date: 20090609
  Receipt Date: 20090605
  Transmission Date: 20091009
  Serious: Yes (Other)
  Sender: FDA-Public Use
  Company Number: US-ALLERGAN-0907877US

PATIENT
  Age: 67 Year
  Sex: Female

DRUGS (1)
  1. RESTASIS [Suspect]
     Indication: DRY EYE
     Dosage: 1 GTT, BID
     Route: 047
     Dates: start: 20090603, end: 20090604

REACTIONS (5)
  - EYE DISCHARGE [None]
  - EYE INFECTION [None]
  - EYE PRURITUS [None]
  - OCULAR HYPERAEMIA [None]
  - ULCER [None]
